FAERS Safety Report 5497296-4 (Version None)
Quarter: 2007Q4

REPORT INFORMATION
  Report Type: 
  Country: None (occurrence: None)
  Receive Date: 20071025
  Receipt Date: 20060926
  Transmission Date: 20080405
  Serious: No
  Sender: FDA-Public Use
  Company Number: A0621487A

PATIENT
  Sex: Male

DRUGS (10)
  1. ADVAIR DISKUS 100/50 [Suspect]
     Indication: CHRONIC OBSTRUCTIVE PULMONARY DISEASE
     Dosage: 1PUFF TWICE PER DAY
     Route: 055
     Dates: start: 20060926
  2. WELLBUTRIN [Concomitant]
  3. ALBUTEROL [Concomitant]
  4. PLAVIX [Concomitant]
  5. SYNTHROID [Concomitant]
  6. ZESTRIL [Concomitant]
  7. ZANTAC [Concomitant]
  8. FOLIC ACID [Concomitant]
  9. METOPROLOL TARTRATE [Concomitant]
  10. LOVASTATIN [Concomitant]

REACTIONS (1)
  - DRUG ADMINISTRATION ERROR [None]
